FAERS Safety Report 18340912 (Version 1)
Quarter: 2020Q4

REPORT INFORMATION
  Report Type: Other
  Country: ES (occurrence: ES)
  Receive Date: 20201003
  Receipt Date: 20201003
  Transmission Date: 20210113
  Serious: Yes (Life-Threatening, Hospitalization)
  Sender: FDA-Public Use
  Company Number: ES-CADILA HEALTHCARE LIMITED-ES-ZYDUS-056461

PATIENT
  Age: 64 Year
  Sex: Female

DRUGS (3)
  1. MIRTAZAPINE. [Suspect]
     Active Substance: MIRTAZAPINE
     Indication: INTENTIONAL OVERDOSE
     Route: 048
     Dates: start: 20200911, end: 20200911
  2. DEPRAX [FLUOXETINE HYDROCHLORIDE] [Interacting]
     Active Substance: FLUOXETINE HYDROCHLORIDE
     Indication: INTENTIONAL OVERDOSE
     Route: 048
     Dates: start: 20200911, end: 20200911
  3. TRANXILIUM [Interacting]
     Active Substance: CLORAZEPATE DIPOTASSIUM
     Indication: INTENTIONAL OVERDOSE
     Dosage: TRANXILIUM 10 MG 2 CAJAS
     Route: 048
     Dates: start: 20200911, end: 20200911

REACTIONS (2)
  - Aspiration [Recovering/Resolving]
  - Confusional state [Recovering/Resolving]

NARRATIVE: CASE EVENT DATE: 20200912
